FAERS Safety Report 9016815 (Version 1)
Quarter: 2013Q1

REPORT INFORMATION
  Report Type: Spontaneous
  Country: US (occurrence: US)
  Receive Date: 20130117
  Receipt Date: 20130117
  Transmission Date: 20140127
  Serious: No
  Sender: FDA-Public Use
  Company Number: US-MYLANLABS-2011S1025846

PATIENT
  Age: 43 Year
  Sex: Male

DRUGS (3)
  1. BALSALAZIDE DISODIUM [Suspect]
     Indication: COLITIS
     Route: 048
     Dates: start: 20111206
  2. PREDNISONE [Suspect]
     Indication: COLITIS
     Route: 048
     Dates: start: 201112, end: 20111205
  3. PREDNISONE [Suspect]
     Indication: COLITIS
     Route: 048
     Dates: start: 20111206

REACTIONS (2)
  - Drug ineffective [Not Recovered/Not Resolved]
  - Diarrhoea [Not Recovered/Not Resolved]
